FAERS Safety Report 7600709-2 (Version None)
Quarter: 2011Q3

REPORT INFORMATION
  Report Type: 
  Country: None (occurrence: None)
  Receive Date: 20110711
  Receipt Date: 20110705
  Transmission Date: 20111222
  Serious: Yes (Other)
  Sender: FDA-Public Use
  Company Number: BR-PFIZER INC-2011150960

PATIENT
  Age: 75 Year
  Sex: Female
  Weight: 74 kg

DRUGS (7)
  1. DIACEREIN [Concomitant]
     Indication: OSTEOARTHRITIS
     Dosage: UNK
  2. SIMVASTATIN [Concomitant]
     Indication: BLOOD CHOLESTEROL INCREASED
     Dosage: ONCE DAILY
     Dates: start: 20070101
  3. LYRICA [Suspect]
     Indication: PANIC DISORDER
     Dosage: UNKNOWN DOSE EVERY 12 HOURS
     Route: 048
     Dates: start: 20110401, end: 20110101
  4. CALCIUM [Concomitant]
     Indication: OSTEOPOROSIS
     Dosage: UNK
  5. ALPRAZOLAM [Concomitant]
     Dosage: 0.5 MG (1/4 OF THE TABLET OF 2MG), 1X/DAY
     Dates: start: 20110401
  6. ABLOCK [Concomitant]
     Indication: BLOOD PRESSURE INCREASED
     Dosage: UNK
  7. OMEPRAZOLE [Concomitant]
     Indication: PROPHYLAXIS
     Dosage: ONCE DAILY
     Dates: start: 20070101

REACTIONS (4)
  - MALAISE [None]
  - MUSCULAR WEAKNESS [None]
  - ASTHENIA [None]
  - WHITE BLOOD CELL COUNT DECREASED [None]
